FAERS Safety Report 19373515 (Version 1)
Quarter: 2021Q2

REPORT INFORMATION
  Report Type: Report from Study
  Country: FR (occurrence: FR)
  Receive Date: 20210603
  Receipt Date: 20210603
  Transmission Date: 20210717
  Serious: Yes (Other)
  Sender: FDA-Public Use
  Company Number: FR-MYLANLABS-2021M1032183

PATIENT
  Sex: Female

DRUGS (4)
  1. IMMUNOGLOBULINS NOS [Suspect]
     Active Substance: IMMUNE GLOBULIN NOS
     Indication: INCLUSION BODY MYOSITIS
     Dosage: UNK
     Route: 042
  2. CYCLOPHOSPHAMIDE. [Suspect]
     Active Substance: CYCLOPHOSPHAMIDE
     Indication: INCLUSION BODY MYOSITIS
     Dosage: UNK
     Route: 065
  3. RITUXIMAB. [Suspect]
     Active Substance: RITUXIMAB
     Indication: INCLUSION BODY MYOSITIS
     Dosage: UNK
     Route: 065
  4. METHOTREXATE. [Suspect]
     Active Substance: METHOTREXATE
     Indication: INCLUSION BODY MYOSITIS
     Dosage: UNK
     Route: 065

REACTIONS (1)
  - Drug ineffective [Unknown]
